FAERS Safety Report 7028412-0 (Version None)
Quarter: 2010Q4

REPORT INFORMATION
  Report Type: 
  Country: None (occurrence: None)
  Receive Date: 20101005
  Receipt Date: 20100930
  Transmission Date: 20110411
  Serious: Yes (Other)
  Sender: FDA-Public Use
  Company Number: CH-PFIZER INC-2010124009

PATIENT
  Age: 54 Year
  Sex: Male

DRUGS (6)
  1. VFEND [Suspect]
     Indication: ANTIFUNGAL PROPHYLAXIS
     Dosage: UNK
     Dates: start: 20100801, end: 20100810
  2. NEXIUM [Concomitant]
     Dosage: 40 MG, 1X/DAY
     Route: 040
  3. CYMEVENE [Concomitant]
     Dosage: 200 MG, 2X/DAY
  4. SANDIMMUNE [Concomitant]
     Dosage: 75 MG, 1X/DAY
     Route: 048
  5. CIPROFLOXACIN HYDROCHLORIDE [Concomitant]
     Dosage: UNK
  6. PREDNISONE TAB [Concomitant]
     Dosage: 60 MG, 1X/DAY

REACTIONS (3)
  - BRADYCARDIA [None]
  - ELECTROCARDIOGRAM QT PROLONGED [None]
  - MALAISE [None]
